FAERS Safety Report 10062968 (Version 1)
Quarter: 2014Q1

REPORT INFORMATION
  Report Type: Spontaneous
  Country: US (occurrence: None)
  Receive Date: 20140318
  Receipt Date: 20140318
  Transmission Date: 20141002
  Serious: Yes (Other)
  Sender: FDA-Public Use
  Company Number: 163-21660-13120953

PATIENT
  Age: 60 Year
  Sex: Female
  Weight: 68.04 kg

DRUGS (3)
  1. ABRAXANE [Suspect]
     Indication: LUNG NEOPLASM MALIGNANT
     Dosage: 3 IN 4 WK
     Route: 042
     Dates: start: 201310
  2. PHENERGAN (PROMETHAZINE) (UNKNOWN) [Concomitant]
  3. ALOXI (PALONOSETRON HYDROCHLORIDE) (UNKNOWN) [Concomitant]

REACTIONS (5)
  - Visual impairment [None]
  - Face oedema [None]
  - Lacrimation increased [None]
  - Paraesthesia [None]
  - Nausea [None]
